FAERS Safety Report 6706475-7 (Version None)
Quarter: 2010Q2

REPORT INFORMATION
  Report Type: 
  Country: None (occurrence: None)
  Receive Date: 20100503
  Receipt Date: 20090518
  Transmission Date: 20101027
  Serious: Yes (Other)
  Sender: FDA-Public Use
  Company Number: US-BAYER-200910890BCC

PATIENT
  Age: 48 Year
  Sex: Female

DRUGS (2)
  1. ALEVE [Suspect]
     Indication: HEADACHE
     Dosage: UNIT DOSE: 220 MG
     Dates: start: 20090317
  2. CALCIUM [Concomitant]

REACTIONS (3)
  - DELUSION [None]
  - FEELING ABNORMAL [None]
  - SENSATION OF HEAVINESS [None]
